FAERS Safety Report 7538355-1 (Version None)
Quarter: 2011Q2

REPORT INFORMATION
  Report Type: 
  Country: None (occurrence: None)
  Receive Date: 20110609
  Receipt Date: 20071220
  Transmission Date: 20111010
  Serious: Yes (Other)
  Sender: FDA-Public Use
  Company Number: CA-GENENTECH-319885

PATIENT
  Sex: Female
  Weight: 66 kg

DRUGS (1)
  1. XOLAIR [Suspect]
     Indication: ASTHMA
     Dosage: 150 MG, Q4W
     Route: 058
     Dates: start: 20060211

REACTIONS (5)
  - MALAISE [None]
  - HYPOTHYROIDISM [None]
  - THROAT LESION [None]
  - HYPERTHYROIDISM [None]
  - PALPITATIONS [None]
